FAERS Safety Report 17242635 (Version 3)
Quarter: 2020Q1

REPORT INFORMATION
  Report Type: Spontaneous
  Country: US (occurrence: US)
  Receive Date: 20200107
  Receipt Date: 20200320
  Transmission Date: 20200409
  Serious: No
  Sender: FDA-Public Use
  Company Number: US-SA-2020SA003632

PATIENT
  Age: 59 Year
  Sex: Female

DRUGS (1)
  1. DUPIXENT [Suspect]
     Active Substance: DUPILUMAB
     Indication: DERMATITIS ATOPIC
     Dosage: 300 MG, QOW
     Route: 058
     Dates: start: 20191105

REACTIONS (9)
  - Pain in extremity [Unknown]
  - Eye pain [Unknown]
  - Fatigue [Unknown]
  - Eye irritation [Unknown]
  - Eye discharge [Unknown]
  - Eye swelling [Unknown]
  - Ocular hyperaemia [Unknown]
  - Back pain [Unknown]
  - Muscle spasms [Unknown]
